FAERS Safety Report 10911024 (Version 1)
Quarter: 2015Q1

REPORT INFORMATION
  Report Type: Report from Study
  Country: KR (occurrence: KR)
  Receive Date: 20150312
  Receipt Date: 20150312
  Transmission Date: 20150721
  Serious: Yes (Death, Other)
  Sender: FDA-Public Use
  Company Number: KR-GLAXOSMITHKLINE-KR2015GSK032810

PATIENT
  Sex: Male
  Weight: 72 kg

DRUGS (7)
  1. PAZOPANIB [Suspect]
     Active Substance: PAZOPANIB
     Indication: RENAL NEOPLASM
     Dosage: 800 MG, QD
     Dates: start: 20140512, end: 20150301
  2. OXYCODONE [Concomitant]
     Active Substance: OXYCODONE
     Dosage: 5 MG, PRN
     Route: 048
     Dates: start: 20140519
  3. MAGNESIUM HYDROXIDE. [Concomitant]
     Active Substance: MAGNESIUM HYDROXIDE
     Dosage: 500 MG, TID
     Route: 048
     Dates: start: 20140519
  4. ACETAMINOPHEN. [Concomitant]
     Active Substance: ACETAMINOPHEN
     Dosage: 650 MG, PRN
     Route: 048
     Dates: start: 20140519
  5. LACTULOSE SYRUP [Concomitant]
     Dosage: 20 ML, PRN
     Route: 048
     Dates: start: 20140519
  6. MEGESTROL [Concomitant]
     Active Substance: MEGESTROL
     Dosage: 40 ML, PRN
     Route: 048
     Dates: start: 20140610
  7. GABAPENTIN. [Concomitant]
     Active Substance: GABAPENTIN
     Dosage: 100 MG, TID
     Dates: start: 20140519

REACTIONS (1)
  - Pneumonia [Fatal]

NARRATIVE: CASE EVENT DATE: 20150308
